FAERS Safety Report 7927637-7 (Version None)
Quarter: 2011Q4

REPORT INFORMATION
  Report Type: 
  Country: None (occurrence: None)
  Receive Date: 20111118
  Receipt Date: 20111107
  Transmission Date: 20120403
  Serious: Yes (Death, Hospitalization, Other)
  Sender: FDA-Public Use
  Company Number: US-BAXTER-2011BH030782

PATIENT
  Age: 72 Year
  Sex: Male
  Weight: 77 kg

DRUGS (5)
  1. EXTRANEAL [Suspect]
     Indication: FLUID IMBALANCE
     Route: 033
     Dates: start: 20100514, end: 20111026
  2. DIANEAL [Suspect]
     Indication: PERITONEAL DIALYSIS
     Route: 033
     Dates: start: 20100514, end: 20111026
  3. EXTRANEAL [Suspect]
     Indication: PERITONEAL DIALYSIS
     Route: 033
     Dates: start: 20100514, end: 20111026
  4. DIANEAL [Suspect]
     Indication: FLUID IMBALANCE
     Route: 033
     Dates: start: 20100514, end: 20111026
  5. ANTIBIOTICS [Suspect]
     Indication: PRODUCT USED FOR UNKNOWN INDICATION
     Route: 065

REACTIONS (6)
  - PANCREATITIS [None]
  - LOCALISED INFECTION [None]
  - GANGRENE [None]
  - CARDIAC ARREST [None]
  - DRUG HYPERSENSITIVITY [None]
  - MALAISE [None]
